FAERS Safety Report 4447730-3 (Version None)
Quarter: 2004Q3

REPORT INFORMATION
  Report Type: 
  Country: None (occurrence: None)
  Receive Date: 20040913
  Receipt Date: 20040623
  Transmission Date: 20050211
  Serious: Yes (Hospitalization)
  Sender: FDA-Public Use
  Company Number: PHFR2004GB02604

PATIENT
  Age: 30 Year
  Sex: Female

DRUGS (2)
  1. CLOZARIL [Suspect]
     Indication: SCHIZOPHRENIA
     Dosage: 100MG/DAY
     Route: 048
     Dates: start: 20040102
  2. CLOZARIL [Suspect]
     Dosage: 14 TABLETS/OVERDOSE
     Dates: start: 20040618

REACTIONS (2)
  - FEELINGS OF WORTHLESSNESS [None]
  - OVERDOSE [None]
